FAERS Safety Report 18687584 (Version 1)
Quarter: 2020Q4

REPORT INFORMATION
  Report Type: Spontaneous
  Country: DE (occurrence: DE)
  Receive Date: 20201231
  Receipt Date: 20201231
  Transmission Date: 20210114
  Serious: Yes (Hospitalization)
  Sender: FDA-Public Use
  Company Number: NVSC2020DE335826

PATIENT
  Age: 78 Year
  Sex: Female

DRUGS (8)
  1. PHENPROCOUMON [Suspect]
     Active Substance: PHENPROCOUMON
     Indication: PRODUCT USED FOR UNKNOWN INDICATION
     Dosage: UNK (3MG)
     Route: 065
  2. PANTOPRAZOLE [Concomitant]
     Active Substance: PANTOPRAZOLE
     Indication: PRODUCT USED FOR UNKNOWN INDICATION
     Dosage: UNK (1-0-0-0)
     Route: 065
  3. RAMIPRIL. [Concomitant]
     Active Substance: RAMIPRIL
     Dosage: UNK (2.5 MG, 1-0-0-1)
     Route: 065
  4. SIMVASTATIN. [Concomitant]
     Active Substance: SIMVASTATIN
     Indication: PRODUCT USED FOR UNKNOWN INDICATION
     Dosage: UNK (20 MG, 0-0-1-0)
     Route: 065
  5. ALLOPURINOL. [Concomitant]
     Active Substance: ALLOPURINOL
     Dosage: UNK (100 MG, 0-1-0-0)
     Route: 065
  6. DIGITOXIN [Suspect]
     Active Substance: DIGITOXIN
     Dosage: UNK (0.07 MG, 1-0-0-0)
     Route: 065
  7. METOPROLOL. [Suspect]
     Active Substance: METOPROLOL
     Indication: PRODUCT USED FOR UNKNOWN INDICATION
     Dosage: UNK (47.5 MG, 1-0-0-1)
     Route: 065
  8. TORASEMID [Concomitant]
     Active Substance: TORSEMIDE
     Indication: PRODUCT USED FOR UNKNOWN INDICATION
     Dosage: UNK (10 MG, 1-0-0-0)
     Route: 065

REACTIONS (7)
  - Arrhythmia [Unknown]
  - Asthenia [Unknown]
  - Diarrhoea [Unknown]
  - Dyspnoea exertional [Unknown]
  - Dizziness [Unknown]
  - Anaemia [Unknown]
  - Bradycardia [Unknown]
